FAERS Safety Report 25479799 (Version 1)
Quarter: 2025Q2

REPORT INFORMATION
  Report Type: Spontaneous
  Country: US (occurrence: US)
  Receive Date: 20250625
  Receipt Date: 20250625
  Transmission Date: 20250716
  Serious: Yes (Death)
  Sender: MERCK SHARP & DOHME LLC
  Company Number: US-009507513-2280778

PATIENT
  Age: 75 Year
  Sex: Female

DRUGS (1)
  1. RECARBRIO [Suspect]
     Active Substance: CILASTATIN\IMIPENEM ANHYDROUS\RELEBACTAM ANHYDROUS
     Dates: start: 20250307, end: 20250320

REACTIONS (3)
  - Urinary tract infection [Fatal]
  - Pneumonia pseudomonal [Fatal]
  - Septic shock [Fatal]

NARRATIVE: CASE EVENT DATE: 20250320
